FAERS Safety Report 10277017 (Version 2)
Quarter: 2014Q3

REPORT INFORMATION
  Report Type: Spontaneous
  Country: CH (occurrence: CH)
  Receive Date: 20140703
  Receipt Date: 20140703
  Transmission Date: 20150326
  Serious: Yes (Life-Threatening, Other)
  Sender: FDA-Public Use
  Company Number: CH-RB PHARMACEUTICALS LIMITED-RB-68710-2014

PATIENT

DRUGS (8)
  1. ZOFRAN [Concomitant]
     Active Substance: ONDANSETRON HYDROCHLORIDE
     Indication: PRODUCT USED FOR UNKNOWN INDICATION
     Route: 048
     Dates: start: 20140427, end: 20140505
  2. TEMGESIC TABLET [Suspect]
     Active Substance: BUPRENORPHINE HYDROCHLORIDE
     Dosage: 0.2 MG, TID
     Route: 060
     Dates: start: 20140428, end: 20140428
  3. TEMGESIC TABLET [Suspect]
     Active Substance: BUPRENORPHINE HYDROCHLORIDE
     Dosage: 0.1 MG, TID
     Route: 060
     Dates: start: 20140428, end: 20140428
  4. NEXIUM [Concomitant]
     Active Substance: ESOMEPRAZOLE MAGNESIUM
     Indication: PRODUCT USED FOR UNKNOWN INDICATION
     Route: 048
     Dates: start: 20140424
  5. TEMGESIC TABLET [Suspect]
     Active Substance: BUPRENORPHINE HYDROCHLORIDE
     Indication: INCISION SITE PAIN
     Dosage: UNK UNK, TID
     Route: 060
     Dates: start: 20140427, end: 20140428
  6. TEMGESIC TABLET [Suspect]
     Active Substance: BUPRENORPHINE HYDROCHLORIDE
     Dosage: 0.4 MG, TID
     Route: 060
     Dates: start: 20140428, end: 20140428
  7. PERFALGAN [Concomitant]
     Active Substance: ACETAMINOPHEN
     Indication: PRODUCT USED FOR UNKNOWN INDICATION
     Route: 041
     Dates: start: 20140428, end: 20140430
  8. CLEXANE [Concomitant]
     Active Substance: ENOXAPARIN SODIUM
     Indication: THROMBOSIS MESENTERIC VESSEL
     Route: 058
     Dates: start: 20140425

REACTIONS (4)
  - Respiratory arrest [Recovered/Resolved]
  - Somnolence [Recovered/Resolved]
  - Apnoea [Recovered/Resolved]
  - Therapy naive [Unknown]

NARRATIVE: CASE EVENT DATE: 20140427
